FAERS Safety Report 23920772 (Version 1)
Quarter: 2024Q2

REPORT INFORMATION
  Report Type: Spontaneous
  Country: US (occurrence: US)
  Receive Date: 20240530
  Receipt Date: 20240530
  Transmission Date: 20240715
  Serious: No
  Sender: FDA-Public Use
  Company Number: US-SA-SAC20240529000408

PATIENT
  Age: 83 Year
  Sex: Male

DRUGS (2)
  1. FLOMAX [Suspect]
     Active Substance: TAMSULOSIN HYDROCHLORIDE
     Indication: Product used for unknown indication
     Dosage: UNK
  2. ORGOVYX [Suspect]
     Active Substance: RELUGOLIX
     Indication: Prostate cancer
     Dosage: 120 MG, QD
     Route: 048
     Dates: start: 20231029

REACTIONS (13)
  - Gait disturbance [Not Recovered/Not Resolved]
  - Heart rate decreased [Unknown]
  - Pain [Unknown]
  - Ageusia [Unknown]
  - Fatigue [Unknown]
  - Nocturia [Not Recovered/Not Resolved]
  - Skin disorder [Unknown]
  - Dyspnoea [Unknown]
  - Sinus disorder [Unknown]
  - Balance disorder [Not Recovered/Not Resolved]
  - Walking aid user [Unknown]
  - Asthenia [Not Recovered/Not Resolved]
  - Product use in unapproved indication [Unknown]
